FAERS Safety Report 15895769 (Version 1)
Quarter: 2019Q1

REPORT INFORMATION
  Report Type: Spontaneous
  Country: US (occurrence: US)
  Receive Date: 20190108
  Receipt Date: 20190108
  Transmission Date: 20190417
  Serious: No
  Sender: FDA-Public Use
  Company Number: None

PATIENT
  Age: 4 Year
  Sex: Female
  Weight: 1.3 kg

DRUGS (6)
  1. ERWINAZE [Suspect]
     Active Substance: ASPARAGINASE ERWINIA CHRYSANTHEMI
     Indication: B-CELL TYPE ACUTE LEUKAEMIA
     Dosage: ?          OTHER FREQUENCY:ALTERNATING QMWFX6;?
     Route: 042
  2. METHOREXATE 12MG [Concomitant]
  3. ERWINAZE [Suspect]
     Active Substance: ASPARAGINASE ERWINIA CHRYSANTHEMI
     Indication: DRUG HYPERSENSITIVITY
     Dosage: ?          OTHER FREQUENCY:ALTERNATE QMWF X6;?
     Route: 042
  4. DEXAMETHASONE 3MG [Concomitant]
  5. VINCRISTINE [Concomitant]
     Active Substance: VINCRISTINE
  6. DOXORUBICIN 15MG [Concomitant]

REACTIONS (3)
  - Vomiting [None]
  - Product quality issue [None]
  - Rash [None]

NARRATIVE: CASE EVENT DATE: 20181219
